FAERS Safety Report 7393259-2 (Version None)
Quarter: 2011Q2

REPORT INFORMATION
  Report Type: 
  Country: None (occurrence: None)
  Receive Date: 20110405
  Receipt Date: 20110324
  Transmission Date: 20111010
  Serious: Yes (Death, Hospitalization)
  Sender: FDA-Public Use
  Company Number: US-BIOGENIDEC-2011BI011529

PATIENT
  Age: 55 Year
  Sex: Male
  Weight: 113 kg

DRUGS (3)
  1. TYSABRI [Suspect]
     Indication: MULTIPLE SCLEROSIS
     Route: 042
     Dates: start: 20081002, end: 20110224
  2. BACLOFEN [Concomitant]
     Indication: MUSCLE SPASTICITY
     Route: 048
     Dates: end: 20110316
  3. NEURONTIN [Concomitant]
     Indication: MUSCLE SPASTICITY
     Route: 048
     Dates: start: 20100325, end: 20110316

REACTIONS (1)
  - MYOCARDIAL INFARCTION [None]
